FAERS Safety Report 22712799 (Version 4)
Quarter: 2023Q4

REPORT INFORMATION
  Report Type: Spontaneous
  Country: US (occurrence: US)
  Receive Date: 20230717
  Receipt Date: 20231208
  Transmission Date: 20240109
  Serious: Yes (Other)
  Sender: FDA-Public Use
  Company Number: US-PFIZER INC-PV202300121672

PATIENT
  Age: 72 Year
  Sex: Female

DRUGS (4)
  1. IBRANCE [Suspect]
     Active Substance: PALBOCICLIB
     Dosage: INITIAL
  2. IBRANCE [Suspect]
     Active Substance: PALBOCICLIB
     Dosage: INCREASED TO 125 MG
  3. IBRANCE [Suspect]
     Active Substance: PALBOCICLIB
     Dosage: REDUCED BACK TO 100 MG
  4. IBRANCE [Suspect]
     Active Substance: PALBOCICLIB
     Dosage: REDUCED TO 75 MG

REACTIONS (2)
  - Neutropenia [Unknown]
  - Rash [Unknown]

NARRATIVE: CASE EVENT DATE: 20231124
